FAERS Safety Report 18467295 (Version 1)
Quarter: 2020Q4

REPORT INFORMATION
  Report Type: Spontaneous
  Country: US (occurrence: US)
  Receive Date: 20201104
  Receipt Date: 20201104
  Transmission Date: 20210114
  Serious: Yes (Other)
  Sender: FDA-Public Use
  Company Number: None

PATIENT
  Age: 46 Year
  Sex: Female
  Weight: 62.1 kg

DRUGS (7)
  1. BENZOCAINE-MENTHOL [Concomitant]
     Dates: start: 20201013, end: 20201013
  2. INSULIN ASPART [Concomitant]
     Active Substance: INSULIN ASPART
     Dates: start: 20201012, end: 20201014
  3. BENZONATATE. [Concomitant]
     Active Substance: BENZONATATE
     Dates: start: 20201011, end: 20201013
  4. REMDESIVIR. [Suspect]
     Active Substance: REMDESIVIR
     Indication: COVID-19
     Route: 040
     Dates: start: 20201013, end: 20201014
  5. GUAIFENESIN-CODEINE [Concomitant]
     Dates: start: 20201013, end: 20201013
  6. INSULIN GLARGINE [Concomitant]
     Active Substance: INSULIN GLARGINE
     Dates: start: 20201012, end: 20201013
  7. ACETAMINOPHEN. [Concomitant]
     Active Substance: ACETAMINOPHEN
     Dates: start: 20201011, end: 20201014

REACTIONS (1)
  - Liver function test increased [None]

NARRATIVE: CASE EVENT DATE: 20201014
